FAERS Safety Report 26073167 (Version 1)
Quarter: 2025Q4

REPORT INFORMATION
  Report Type: Report from Study
  Country: US (occurrence: US)
  Receive Date: 20251121
  Receipt Date: 20251121
  Transmission Date: 20260117
  Serious: Yes (Other)
  Sender: ROCHE
  Company Number: US-ROCHE-10000440340

PATIENT

DRUGS (7)
  1. ATEZOLIZUMAB [Suspect]
     Active Substance: ATEZOLIZUMAB
     Indication: Lung cancer metastatic
     Route: 065
  2. NIVOLUMAB [Suspect]
     Active Substance: NIVOLUMAB
     Indication: Lung cancer metastatic
     Route: 065
  3. PEMBROLIZUMAB [Suspect]
     Active Substance: PEMBROLIZUMAB
     Indication: Lung cancer metastatic
     Route: 065
  4. DURVALUMAB [Suspect]
     Active Substance: DURVALUMAB
     Indication: Lung cancer metastatic
     Route: 065
  5. AVELUMAB [Suspect]
     Active Substance: AVELUMAB
     Indication: Lung cancer metastatic
     Route: 065
  6. IPILIMUMAB [Suspect]
     Active Substance: IPILIMUMAB
     Indication: Lung cancer metastatic
     Route: 065
  7. TREMELIMUMAB [Suspect]
     Active Substance: TREMELIMUMAB
     Indication: Lung cancer metastatic
     Route: 065

REACTIONS (14)
  - Dermatitis [Unknown]
  - Hepatitis [Unknown]
  - Colitis [Unknown]
  - Endocrine disorder [Unknown]
  - Anaemia [Unknown]
  - Agranulocytosis [Unknown]
  - Neutropenia [Unknown]
  - Constipation [Unknown]
  - Insomnia [Unknown]
  - Infection [Unknown]
  - Pneumonia [Unknown]
  - Eczema [Unknown]
  - Anxiety [Unknown]
  - Depression [Unknown]
